FAERS Safety Report 26092581 (Version 1)
Quarter: 2025Q4

REPORT INFORMATION
  Report Type: Spontaneous
  Country: US (occurrence: US)
  Receive Date: 20251126
  Receipt Date: 20251126
  Transmission Date: 20260118
  Serious: No
  Sender: ALKEM
  Company Number: US-ALKEM LABORATORIES LIMITED-CA-ALKEM-2025-07625

PATIENT
  Age: 32 Year
  Sex: Female

DRUGS (1)
  1. MYCOPHENOLATE MOFETIL [Suspect]
     Active Substance: MYCOPHENOLATE MOFETIL
     Indication: Stiff skin syndrome
     Dosage: 1 GRAM, BID
     Route: 048

REACTIONS (1)
  - Drug effective for unapproved indication [Unknown]
